FAERS Safety Report 11576543 (Version 1)
Quarter: 2015Q3

REPORT INFORMATION
  Report Type: Spontaneous
  Country: US (occurrence: US)
  Receive Date: 20150930
  Receipt Date: 20150930
  Transmission Date: 20151125
  Serious: No
  Sender: FDA-Public Use
  Company Number: US-BAYER-2015-431596

PATIENT
  Age: 60 Year
  Sex: Male
  Weight: 108.84 kg

DRUGS (2)
  1. ALEVE [Suspect]
     Active Substance: NAPROXEN SODIUM
     Dosage: 10 DF, UNK
     Dates: start: 2015
  2. LOSARTAN. [Concomitant]
     Active Substance: LOSARTAN

REACTIONS (5)
  - Product use issue [None]
  - Nasal congestion [None]
  - Cough [None]
  - Epistaxis [Recovered/Resolved]
  - Pyrexia [None]
